FAERS Safety Report 25175226 (Version 1)
Quarter: 2025Q2

REPORT INFORMATION
  Report Type: Spontaneous
  Country: US (occurrence: US)
  Receive Date: 20250408
  Receipt Date: 20250408
  Transmission Date: 20250717
  Serious: No
  Sender: MERCK SHARP AND DOHME
  Company Number: US-009507513-2273688

PATIENT
  Sex: Female
  Weight: 81.6 kg

DRUGS (28)
  1. SOTATERCEPT [Suspect]
     Active Substance: SOTATERCEPT
  2. SOTATERCEPT [Suspect]
     Active Substance: SOTATERCEPT
  3. SOTATERCEPT [Suspect]
     Active Substance: SOTATERCEPT
  4. SOTATERCEPT [Suspect]
     Active Substance: SOTATERCEPT
  5. REMODULIN [Suspect]
     Active Substance: TREPROSTINIL
     Indication: Pulmonary arterial hypertension
     Route: 058
     Dates: start: 20241008
  6. METOPROLOL TARTRATE [Concomitant]
     Active Substance: METOPROLOL TARTRATE
  7. TYLENOL [Concomitant]
     Active Substance: ACETAMINOPHEN
  8. MEDROXYPROGESTERONE ACETATE [Concomitant]
     Active Substance: MEDROXYPROGESTERONE ACETATE
  9. Aminofen [Concomitant]
  10. VITAMIN D2 [Concomitant]
     Active Substance: ERGOCALCIFEROL
  11. KETAMINE HYDROCHLORIDE [Concomitant]
     Active Substance: KETAMINE HYDROCHLORIDE
  12. LECITHIN [Concomitant]
     Active Substance: LECITHIN
  13. ALBUTEROL SULFATE [Concomitant]
     Active Substance: ALBUTEROL SULFATE
  14. MAGNESIUM [Concomitant]
     Active Substance: MAGNESIUM
  15. CLONIDINE [Concomitant]
     Active Substance: CLONIDINE
  16. KETOPROFEN [Concomitant]
     Active Substance: KETOPROFEN
  17. OXYGEN [Concomitant]
     Active Substance: OXYGEN
  18. SPIRONOLACTONE [Concomitant]
     Active Substance: SPIRONOLACTONE
  19. REVATIO [Concomitant]
     Active Substance: SILDENAFIL CITRATE
  20. AMIODARONE HYDROCHLORIDE [Concomitant]
     Active Substance: AMIODARONE HYDROCHLORIDE
  21. LIDOCAINE HYDROCHLORIDE [Concomitant]
     Active Substance: LIDOCAINE HYDROCHLORIDE
  22. FUROSEMIDE [Concomitant]
     Active Substance: FUROSEMIDE
  23. AMITRIPTYLINE [Concomitant]
     Active Substance: AMITRIPTYLINE
  24. GABAPENTIN [Concomitant]
     Active Substance: GABAPENTIN
  25. POLOXAMER [Concomitant]
     Active Substance: POLOXAMER
  26. LOPERAMIDE [Concomitant]
     Active Substance: LOPERAMIDE
  27. AMBRISENTAN [Concomitant]
     Active Substance: AMBRISENTAN
  28. POTASSIUM CHLORIDE [Concomitant]
     Active Substance: POTASSIUM CHLORIDE

REACTIONS (1)
  - Headache [Unknown]
